FAERS Safety Report 19213884 (Version 1)
Quarter: 2021Q2

REPORT INFORMATION
  Report Type: Spontaneous
  Country: US (occurrence: US)
  Receive Date: 20210504
  Receipt Date: 20210504
  Transmission Date: 20210717
  Serious: Yes (Hospitalization)
  Sender: FDA-Public Use
  Company Number: US-HORIZON THERAPEUTICS-HZN-2021-002040

PATIENT

DRUGS (3)
  1. ITRACONAZOLE. [Concomitant]
     Active Substance: ITRACONAZOLE
  2. TRIMETHOPRIM. [Concomitant]
     Active Substance: TRIMETHOPRIM
  3. ACTIMMUNE [Suspect]
     Active Substance: INTERFERON GAMMA-1B
     Indication: WHITE BLOOD CELL COUNT
     Dosage: 0.25 ML (50 MCG)  (3 TIMES WEEKLY), 100 MCG / 0.5 ML SDV 1^S
     Route: 058

REACTIONS (2)
  - Infection [Recovering/Resolving]
  - Pyrexia [Recovering/Resolving]
